FAERS Safety Report 20587055 (Version 3)
Quarter: 2025Q1

REPORT INFORMATION
  Report Type: Spontaneous
  Country: US (occurrence: US)
  Receive Date: 20220314
  Receipt Date: 20250109
  Transmission Date: 20250409
  Serious: Yes (Hospitalization, Other)
  Sender: NOVO NORDISK
  Company Number: US-NOVOPROD-897688

PATIENT
  Age: 63 Year
  Sex: Male
  Weight: 99.8 kg

DRUGS (24)
  1. NOVOLIN N [Concomitant]
     Active Substance: INSULIN HUMAN
     Indication: Type 1 diabetes mellitus
     Route: 058
     Dates: start: 202202
  2. NOVOLOG [Suspect]
     Active Substance: INSULIN ASPART
     Route: 058
     Dates: start: 202112
  3. NOVOLOG [Suspect]
     Active Substance: INSULIN ASPART
     Route: 058
  4. NOVOLOG [Suspect]
     Active Substance: INSULIN ASPART
     Route: 058
     Dates: start: 20210201
  5. NOVOLOG [Suspect]
     Active Substance: INSULIN ASPART
     Indication: Type 1 diabetes mellitus
     Route: 058
     Dates: start: 2007
  6. ZOVIRAX [Concomitant]
     Active Substance: ACYCLOVIR
     Indication: Product used for unknown indication
     Dosage: 15 G, 5 TIMES DAILY
     Route: 061
  7. NORVASC [Concomitant]
     Active Substance: AMLODIPINE BESYLATE
     Indication: Product used for unknown indication
     Dosage: 5 MG, QD
     Route: 048
  8. ASPIRIN [Concomitant]
     Active Substance: ASPIRIN
     Indication: Product used for unknown indication
     Dosage: 82 MG, QD
     Route: 048
  9. COREG [Concomitant]
     Active Substance: CARVEDILOL
     Indication: Product used for unknown indication
     Dosage: 6.25 MG, BID
     Route: 048
  10. COENZYME Q10 [TOCOPHERYL ACETATE;UBIDECARENONE] [Concomitant]
     Indication: Product used for unknown indication
     Dosage: 200 MG, QD
     Route: 048
  11. FLONASE [Concomitant]
     Active Substance: FLUTICASONE PROPIONATE
     Indication: Rhinitis
     Route: 045
  12. GLUCAGONE [Concomitant]
     Indication: Hypoglycaemia
     Route: 045
  13. NIZORAL [Concomitant]
     Active Substance: KETOCONAZOLE
     Indication: Rash
     Dosage: 60 G, BID
     Route: 061
  14. MAGNESIUM GLYCINATE DIHYDRATE [Concomitant]
     Indication: Product used for unknown indication
     Dosage: 240 MG, BID
     Route: 048
  15. MINERALS\VITAMINS [Concomitant]
     Active Substance: MINERALS\VITAMINS
     Indication: Product used for unknown indication
     Route: 048
  16. MYFORTIC [Concomitant]
     Active Substance: MYCOPHENOLATE SODIUM
     Indication: Product used for unknown indication
     Dosage: 360 MG, BID
     Route: 048
  17. ZOFRAN [Concomitant]
     Active Substance: ONDANSETRON HYDROCHLORIDE
     Indication: Nausea
     Dosage: 4 MG, TID
     Route: 048
  18. DEXAMETHASONE [Concomitant]
     Active Substance: DEXAMETHASONE
     Indication: Product used for unknown indication
     Dosage: 5 MG, QD
     Route: 048
  19. PROGRAF [Concomitant]
     Active Substance: TACROLIMUS
     Indication: Product used for unknown indication
     Dosage: 4 MG, BID
     Route: 048
  20. CIALIS [Concomitant]
     Active Substance: TADALAFIL
     Indication: Product used for unknown indication
     Dosage: 20 MG, QD
     Route: 048
  21. MOUNJARO [Concomitant]
     Active Substance: TIRZEPATIDE
     Indication: Product used for unknown indication
     Route: 058
  22. TRIAMCINOLONE ACETONIDE [Concomitant]
     Active Substance: TRIAMCINOLONE ACETONIDE
     Indication: Product used for unknown indication
     Route: 061
  23. VALTREX [Concomitant]
     Active Substance: VALACYCLOVIR HYDROCHLORIDE
     Indication: Oral herpes
     Route: 048
  24. VITAMIN E [Concomitant]
     Active Substance: .ALPHA.-TOCOPHEROL
     Indication: Product used for unknown indication
     Route: 048

REACTIONS (3)
  - Diabetic end stage renal disease [Recovered/Resolved]
  - Amnesia [Recovering/Resolving]
  - Diabetic nephropathy [Unknown]

NARRATIVE: CASE EVENT DATE: 20210104
